FAERS Safety Report 6221547-1 (Version None)
Quarter: 2009Q2

REPORT INFORMATION
  Report Type: 
  Country: None (occurrence: None)
  Receive Date: 20090610
  Receipt Date: 20090529
  Transmission Date: 20091009
  Serious: Yes (Hospitalization)
  Sender: FDA-Public Use
  Company Number: US-ELI_LILLY_AND_COMPANY-US200906000052

PATIENT
  Sex: Male

DRUGS (1)
  1. HUMULIN R [Suspect]

REACTIONS (1)
  - CARDIAC FAILURE CONGESTIVE [None]
